FAERS Safety Report 10350525 (Version 2)
Quarter: 2015Q1

REPORT INFORMATION
  Report Type: Spontaneous
  Country: US (occurrence: US)
  Receive Date: 20140730
  Receipt Date: 20150305
  Transmission Date: 20150720
  Serious: Yes (Hospitalization, Other)
  Sender: FDA-Public Use
  Company Number: US-ASTRAZENECA-2014SE53294

PATIENT
  Age: 606 Month
  Sex: Female

DRUGS (23)
  1. VENTOLIN HFA [Suspect]
     Active Substance: ALBUTEROL SULFATE
     Indication: ASTHMA
     Route: 055
     Dates: start: 2010
  2. OXYCODONE [Concomitant]
     Active Substance: OXYCODONE
  3. ATARAX [Concomitant]
     Active Substance: HYDROXYZINE\HYDROXYZINE HYDROCHLORIDE
  4. AMITRIPTYLENE [Concomitant]
  5. TRICALCIUM PHOSPHATE [Concomitant]
     Active Substance: TRICALCIUM PHOSPHATE
  6. STEROIDS [Concomitant]
     Active Substance: UNSPECIFIED INGREDIENT
  7. ZOLOFT [Concomitant]
     Active Substance: SERTRALINE HYDROCHLORIDE
  8. CARVEDILOL. [Concomitant]
     Active Substance: CARVEDILOL
  9. LIDODERM [Concomitant]
     Active Substance: LIDOCAINE
  10. PREDNISONE. [Concomitant]
     Active Substance: PREDNISONE
  11. ZOLPIDEM [Concomitant]
     Active Substance: ZOLPIDEM\ZOLPIDEM TARTRATE
  12. ADVAIR HFA [Suspect]
     Active Substance: FLUTICASONE PROPIONATE\SALMETEROL XINAFOATE
     Indication: DYSPNOEA
     Dosage: 250/50 UG, 1 PUFF TWICE PER DAY
     Route: 055
     Dates: start: 20140708
  13. RESTASIS [Concomitant]
     Active Substance: CYCLOSPORINE
  14. TRETINOIN. [Concomitant]
     Active Substance: TRETINOIN
  15. SYMBICORT [Suspect]
     Active Substance: BUDESONIDE\FORMOTEROL FUMARATE DIHYDRATE
     Indication: ASTHMA
     Route: 055
     Dates: start: 201401, end: 20140708
  16. DIAZEPAM. [Concomitant]
     Active Substance: DIAZEPAM
  17. LASIX [Concomitant]
     Active Substance: FUROSEMIDE
  18. ADVAIR HFA [Suspect]
     Active Substance: FLUTICASONE PROPIONATE\SALMETEROL XINAFOATE
     Indication: ASTHMA
     Dosage: 250/50 UG, 1 PUFF TWICE PER DAY
     Route: 055
     Dates: start: 20140708
  19. NEBULIZER [Concomitant]
     Active Substance: UNSPECIFIED INGREDIENT
  20. BOTOX [Concomitant]
     Active Substance: ONABOTULINUMTOXINA
  21. NEXIUM [Suspect]
     Active Substance: ESOMEPRAZOLE MAGNESIUM
     Route: 048
  22. COMPAZINE [Concomitant]
     Active Substance: PROCHLORPERAZINE MALEATE
  23. ONDANSETRON [Concomitant]
     Active Substance: ONDANSETRON

REACTIONS (13)
  - Dyspnoea [Recovered/Resolved]
  - Therapeutic response unexpected [Recovering/Resolving]
  - Drug ineffective [Recovering/Resolving]
  - Product use issue [Unknown]
  - Overdose [Unknown]
  - Chest discomfort [Recovering/Resolving]
  - Asthma [Recovering/Resolving]
  - Systemic lupus erythematosus [Not Recovered/Not Resolved]
  - Blindness transient [Recovered/Resolved]
  - Wheezing [Recovering/Resolving]
  - Drug ineffective [Unknown]
  - Visual impairment [Not Recovered/Not Resolved]
  - Chest pain [Recovering/Resolving]

NARRATIVE: CASE EVENT DATE: 201401
